FAERS Safety Report 4841843-X (Version None)
Quarter: 2005Q4

REPORT INFORMATION
  Report Type: 
  Country: None (occurrence: None)
  Receive Date: 20051130
  Receipt Date: 20051117
  Transmission Date: 20060501
  Serious: Yes (Hospitalization, Other)
  Sender: FDA-Public Use
  Company Number: PHBS2005US16972

PATIENT
  Age: 58 Year
  Sex: Male

DRUGS (10)
  1. CYCLOSPORINE [Suspect]
     Indication: LUNG TRANSPLANT
     Route: 042
  2. FENTANYL [Concomitant]
  3. PROPOFOL [Concomitant]
  4. MORPHINE [Concomitant]
  5. DEXMEDETOMIDINE [Concomitant]
  6. GANCICLOVIR [Concomitant]
     Route: 042
  7. BASILIXIMAB [Concomitant]
     Indication: LUNG TRANSPLANT
     Route: 065
  8. METHYLPREDNISOLONE [Concomitant]
     Indication: LUNG TRANSPLANT
     Dosage: 1 G, ONCE/SINGLE
  9. MYCOPHENOLATE MOFETIL [Concomitant]
     Indication: LUNG TRANSPLANT
  10. PREDNISONE [Concomitant]
     Indication: LUNG TRANSPLANT

REACTIONS (14)
  - BRAIN STEM INFARCTION [None]
  - COAGULOPATHY [None]
  - CSF PROTEIN INCREASED [None]
  - EYELID PTOSIS [None]
  - GRAND MAL CONVULSION [None]
  - GRIP STRENGTH DECREASED [None]
  - GUILLAIN-BARRE SYNDROME [None]
  - HAEMOTHORAX [None]
  - HYPOREFLEXIA [None]
  - METABOLIC ENCEPHALOPATHY [None]
  - NEUROTOXICITY [None]
  - PERIPHERAL SENSORY NEUROPATHY [None]
  - QUADRIPARESIS [None]
  - SOMNOLENCE [None]
